FAERS Safety Report 23560295 (Version 1)
Quarter: 2024Q1

REPORT INFORMATION
  Report Type: Spontaneous
  Country: US (occurrence: US)
  Receive Date: 20240223
  Receipt Date: 20240223
  Transmission Date: 20240409
  Serious: No
  Sender: FDA-Public Use
  Company Number: US-TARO PHARMACEUTICALS USA INC.-2023TAR01174

PATIENT

DRUGS (1)
  1. MINOXIDIL [Suspect]
     Active Substance: MINOXIDIL
     Indication: Alopecia
     Dosage: UNK,HALF A CAPFUL ONCE DAILY,ONCE DAILY
     Route: 061
     Dates: start: 202310

REACTIONS (1)
  - Hair colour changes [Not Recovered/Not Resolved]
